FAERS Safety Report 4351431-X (Version None)
Quarter: 2004Q2

REPORT INFORMATION
  Report Type: 
  Country: None (occurrence: None)
  Receive Date: 20040503
  Receipt Date: 20040421
  Transmission Date: 20050107
  Serious: Yes (Hospitalization)
  Sender: FDA-Public Use
  Company Number: US-BRISTOL-MYERS SQUIBB COMPANY-12566246

PATIENT
  Age: 27 Year
  Sex: Female
  Weight: 28 kg

DRUGS (4)
  1. ABILIFY [Suspect]
     Indication: SCHIZOPHRENIA
     Route: 048
  2. ABILIFY [Suspect]
     Indication: PSYCHOTIC DISORDER
     Route: 048
  3. OXCARBAZEPINE [Concomitant]
  4. CLONAZEPAM [Concomitant]

REACTIONS (3)
  - HIRSUTISM [None]
  - MUSCLE HYPERTROPHY [None]
  - PSYCHOTIC DISORDER [None]
